FAERS Safety Report 24652544 (Version 1)
Quarter: 2024Q4

REPORT INFORMATION
  Report Type: Spontaneous
  Country: CA (occurrence: CA)
  Receive Date: 20241122
  Receipt Date: 20241122
  Transmission Date: 20250115
  Serious: Yes (Other)
  Sender: ACCORD
  Company Number: None

PATIENT
  Age: 68 Year
  Sex: Female
  Weight: 93 kg

DRUGS (4)
  1. PACLITAXEL [Suspect]
     Active Substance: PACLITAXEL
     Indication: Malignant peritoneal neoplasm
     Dosage: SOLUTION INTRAVENOUS, 1 EVERY 21 DAYS
     Route: 042
  2. DEXAMETHASONE [Concomitant]
     Active Substance: DEXAMETHASONE
     Dosage: LIQUID INTRA- ARTICULAR
  3. FAMOTIDINE [Concomitant]
     Active Substance: FAMOTIDINE
     Dosage: SOLUTION INTRAVENOUS
  4. GRANISETRON [Concomitant]
     Active Substance: GRANISETRON

REACTIONS (7)
  - Chest discomfort [Recovering/Resolving]
  - Dyspnoea [Recovering/Resolving]
  - Flushing [Recovering/Resolving]
  - Hypotension [Recovering/Resolving]
  - Nausea [Recovering/Resolving]
  - Unresponsive to stimuli [Recovering/Resolving]
  - Wheezing [Recovering/Resolving]
